FAERS Safety Report 7010133-1 (Version None)
Quarter: 2010Q3

REPORT INFORMATION
  Report Type: 
  Country: None (occurrence: None)
  Receive Date: 20100923
  Receipt Date: 20100915
  Transmission Date: 20110219
  Serious: Yes (Other)
  Sender: FDA-Public Use
  Company Number: GB-PFIZER INC-2010117103

PATIENT
  Age: 33 Year
  Sex: Female

DRUGS (5)
  1. DEPO-PROVERA [Suspect]
     Indication: CONTRACEPTION
     Dosage: 150 MG, UNK
     Route: 030
     Dates: end: 20100501
  2. DEPAKOTE [Concomitant]
     Indication: SCHIZOAFFECTIVE DISORDER
     Dosage: 1500 MG, UNK
     Route: 048
  3. MONTELUKAST [Concomitant]
     Indication: ASTHMA
     Dosage: 10 MG, UNK
     Route: 048
  4. OLANZAPINE [Concomitant]
     Indication: SCHIZOAFFECTIVE DISORDER
     Dosage: 15 MG, UNK
     Route: 048
  5. SERETIDE [Concomitant]
     Indication: ASTHMA
     Dosage: 500 UG, 2X/DAY
     Route: 055

REACTIONS (1)
  - ERYTHEMA NODOSUM [None]
